FAERS Safety Report 5033688-5 (Version None)
Quarter: 2006Q2

REPORT INFORMATION
  Report Type: 
  Country: None (occurrence: None)
  Receive Date: 20060623
  Receipt Date: 20060620
  Transmission Date: 20061013
  Serious: Yes (Hospitalization)
  Sender: FDA-Public Use
  Company Number: FR-GLAXOSMITHKLINE-B0428427A

PATIENT
  Age: 67 Year
  Sex: Male

DRUGS (5)
  1. AUGMENTIN '125' [Suspect]
     Dosage: 1G THREE TIMES PER DAY
     Route: 065
     Dates: start: 20060329, end: 20060401
  2. ROCEPHIN [Concomitant]
     Route: 065
     Dates: start: 20060402, end: 20060404
  3. OFLOCET [Concomitant]
     Route: 065
     Dates: start: 20060402, end: 20060404
  4. MORPHINE SULFATE [Concomitant]
     Route: 065
     Dates: start: 20060329, end: 20060403
  5. SKENAN LP [Concomitant]
     Dosage: 30MG TWICE PER DAY
     Route: 065
     Dates: start: 20060329, end: 20060403

REACTIONS (11)
  - ABNORMAL BEHAVIOUR [None]
  - ALANINE AMINOTRANSFERASE INCREASED [None]
  - ASPARTATE AMINOTRANSFERASE INCREASED [None]
  - BLOOD ALKALINE PHOSPHATASE INCREASED [None]
  - DEPRESSED LEVEL OF CONSCIOUSNESS [None]
  - DISORIENTATION [None]
  - ENCEPHALOPATHY [None]
  - GAMMA-GLUTAMYLTRANSFERASE INCREASED [None]
  - HALLUCINATION, VISUAL [None]
  - HEPATITIS [None]
  - PYREXIA [None]
